FAERS Safety Report 7606337-7 (Version None)
Quarter: 2011Q3

REPORT INFORMATION
  Report Type: 
  Country: None (occurrence: None)
  Receive Date: 20110705
  Receipt Date: 20110614
  Transmission Date: 20111222
  Serious: Yes (Other)
  Sender: FDA-Public Use
  Company Number: B0728503A

PATIENT
  Age: 82 Year
  Sex: Female

DRUGS (3)
  1. DIGOXIN (FORMULATION UNKNOWN) (GENERIC) (DIGOXIN) [Suspect]
     Indication: ATRIAL FIBRILLATION
  2. DRONEDARONE HCL [Suspect]
     Indication: ATRIAL FIBRILLATION
  3. METOPROLOL TARTRATE [Concomitant]

REACTIONS (5)
  - BLOOD POTASSIUM INCREASED [None]
  - TOXICITY TO VARIOUS AGENTS [None]
  - NODAL ARRHYTHMIA [None]
  - DRUG INTERACTION [None]
  - DIZZINESS [None]
